FAERS Safety Report 5234625-0 (Version None)
Quarter: 2007Q1

REPORT INFORMATION
  Report Type: 
  Country: None (occurrence: None)
  Receive Date: 20070209
  Receipt Date: 20070201
  Transmission Date: 20070707
  Serious: Yes (Hospitalization)
  Sender: FDA-Public Use
  Company Number: FR-PFIZER INC-2007009635

PATIENT
  Age: 3 Year
  Sex: Female
  Weight: 19 kg

DRUGS (2)
  1. SOLU-MEDROL [Suspect]
     Indication: NEPHRITIC SYNDROME
     Route: 042
     Dates: start: 20060716, end: 20060720
  2. PREDNISONE [Suspect]
     Indication: NEPHRITIC SYNDROME
     Route: 048
     Dates: start: 20060515, end: 20060729

REACTIONS (2)
  - HYPERGLYCAEMIA [None]
  - HYPERTENSION [None]
